FAERS Safety Report 4820181-5 (Version None)
Quarter: 2005Q4

REPORT INFORMATION
  Report Type: 
  Country: None (occurrence: None)
  Receive Date: 20051012
  Receipt Date: 20050623
  Transmission Date: 20060501
  Serious: No
  Sender: FDA-Public Use
  Company Number: A03200501927

PATIENT
  Age: 85 Year
  Sex: Female

DRUGS (6)
  1. UROXATRAL [Suspect]
     Indication: URINARY INCONTINENCE
     Dosage: 10 MG AFTER SUPPER - ORAL
     Route: 048
     Dates: start: 20050601
  2. UROXATRAL [Suspect]
     Indication: URINARY RETENTION
     Dosage: 10 MG AFTER SUPPER - ORAL
     Route: 048
     Dates: start: 20050601
  3. CARVEDILOL [Concomitant]
  4. LISINOPRIL [Concomitant]
  5. AMLODIPINE BESYLATE [Concomitant]
  6. POTASSIUM [Concomitant]

REACTIONS (1)
  - DRUG INEFFECTIVE FOR UNAPPROVED INDICATION [None]
